FAERS Safety Report 9233298 (Version 1)
Quarter: 2013Q2

REPORT INFORMATION
  Report Type: Spontaneous
  Country: US (occurrence: US)
  Receive Date: 20130416
  Receipt Date: 20130416
  Transmission Date: 20140414
  Serious: No
  Sender: FDA-Public Use
  Company Number: US-BANPHARM-20130911

PATIENT
  Age: 50 Year
  Sex: Male
  Weight: 77.11 kg

DRUGS (6)
  1. ALEVE LIQUID GELS 220MG [Suspect]
     Route: 048
  2. ALEVE [Suspect]
  3. WELLBUTRIN [Concomitant]
  4. LITHIUM [Concomitant]
  5. LAMICTAL [Concomitant]
  6. NEURONTIN [Concomitant]

REACTIONS (8)
  - Back pain [Recovered/Resolved]
  - Headache [Recovered/Resolved]
  - Pain in extremity [Recovered/Resolved]
  - Musculoskeletal pain [Recovered/Resolved]
  - Abdominal pain upper [Recovered/Resolved]
  - Incorrect drug administration duration [Unknown]
  - Incorrect dose administered [Unknown]
  - Incorrect dose administered [Unknown]
